FAERS Safety Report 9659432 (Version 1)
Quarter: 2013Q4

REPORT INFORMATION
  Report Type: Spontaneous
  Country: SG (occurrence: SG)
  Receive Date: 20131031
  Receipt Date: 20131031
  Transmission Date: 20140711
  Serious: Yes (Other)
  Sender: FDA-Public Use
  Company Number: SG-BAYER-2013-132790

PATIENT
  Age: 52 Year
  Sex: Female
  Weight: 65 kg

DRUGS (1)
  1. AVELOX TABLET 400 MG [Suspect]
     Indication: SKIN INFECTION
     Dosage: 400 MG, QD
     Route: 048
     Dates: start: 20130827, end: 20130831

REACTIONS (1)
  - Erythema multiforme [Not Recovered/Not Resolved]
